FAERS Safety Report 25792412 (Version 1)
Quarter: 2025Q3

REPORT INFORMATION
  Report Type: Spontaneous
  Country: US (occurrence: None)
  Receive Date: 20250911
  Receipt Date: 20250911
  Transmission Date: 20251020
  Serious: Yes (Other)
  Sender: FDA-CTU
  Company Number: None

PATIENT
  Age: 70 Year
  Sex: Male
  Weight: 118 kg

DRUGS (1)
  1. CABOMETYX [Suspect]
     Active Substance: CABOZANTINIB S-MALATE
     Indication: Renal cancer
     Dosage: FREQUENCY : DAILY;?
     Route: 048
     Dates: start: 20250324

REACTIONS (6)
  - Blister [None]
  - Dyspnoea [None]
  - Pain in extremity [None]
  - Pain in extremity [None]
  - Dysphonia [None]
  - Skin exfoliation [None]

NARRATIVE: CASE EVENT DATE: 20250514
